FAERS Safety Report 12884060 (Version 3)
Quarter: 2018Q4

REPORT INFORMATION
  Report Type: Spontaneous
  Country: GB (occurrence: GB)
  Receive Date: 20161026
  Receipt Date: 20181206
  Transmission Date: 20190204
  Serious: Yes (Life-Threatening, Other)
  Sender: FDA-Public Use
  Company Number: GB-JNJFOC-20161021267

PATIENT
  Age: 45 Year
  Sex: Male

DRUGS (5)
  1. NEFOPAM [Concomitant]
     Active Substance: NEFOPAM
     Route: 065
  2. LOPERAMIDE [Suspect]
     Active Substance: LOPERAMIDE
     Indication: DIARRHOEA
     Dosage: 4 TO 6 MG
     Route: 048
  3. LOPERAMIDE [Suspect]
     Active Substance: LOPERAMIDE
     Indication: DIARRHOEA
     Dosage: 40 TO 50 MG
     Route: 048
  4. LOPERAMIDE [Suspect]
     Active Substance: LOPERAMIDE
     Indication: DIARRHOEA
     Dosage: 15 TO 20 MG
     Route: 048
  5. FLUOXETINE [Concomitant]
     Active Substance: FLUOXETINE HYDROCHLORIDE
     Route: 065

REACTIONS (5)
  - Hypogonadism [Recovering/Resolving]
  - Hypopituitarism [Recovering/Resolving]
  - Adrenal insufficiency [Recovering/Resolving]
  - Overdose [Unknown]
  - Drug ineffective [Unknown]
